FAERS Safety Report 5337821-7 (Version None)
Quarter: 2007Q2

REPORT INFORMATION
  Report Type: 
  Country: None (occurrence: None)
  Receive Date: 20070308
  Receipt Date: 20061228
  Transmission Date: 20071010
  Serious: No
  Sender: FDA-Public Use
  Company Number: 2006-BP-15108BP

PATIENT
  Sex: Male

DRUGS (3)
  1. SPIRIVA [Suspect]
     Indication: CHRONIC OBSTRUCTIVE PULMONARY DISEASE
     Dosage: 18 MCG (18 MCG, 1 IN 1 D), IH
     Route: 055
     Dates: start: 20060401, end: 20061226
  2. FLOMAX (MORNIFLUMATE) [Concomitant]
  3. ASMANEX TWISTHALER [Concomitant]

REACTIONS (3)
  - MICTURITION URGENCY [None]
  - NOCTURIA [None]
  - URINARY RETENTION [None]
